FAERS Safety Report 5006044-3 (Version None)
Quarter: 2006Q1

REPORT INFORMATION
  Report Type: 
  Country: None (occurrence: None)
  Receive Date: 20060320
  Receipt Date: 20050407
  Transmission Date: 20060701
  Serious: Yes (Other)
  Sender: FDA-Public Use
  Company Number: 2004-01-1677

PATIENT
  Age: 28 Year
  Sex: Female

DRUGS (2)
  1. PEG-INTRON [Suspect]
     Dosage: 120 MCG VIAL SUBCUTANEOUS
     Route: 058
     Dates: start: 20040108, end: 20040122
  2. REBETOL [Suspect]
     Dosage: 1000 MG QD ORAL
     Route: 048
     Dates: start: 20040108, end: 20040122

REACTIONS (3)
  - ABORTION SPONTANEOUS [None]
  - DERMATITIS [None]
  - DRUG EXPOSURE DURING PREGNANCY [None]
